FAERS Safety Report 8158048-X (Version None)
Quarter: 2012Q1

REPORT INFORMATION
  Report Type: 
  Country: None (occurrence: None)
  Receive Date: 20120222
  Receipt Date: 20120215
  Transmission Date: 20120608
  Serious: Yes (Other)
  Sender: FDA-Public Use
  Company Number: PHHY2011JP78750

PATIENT
  Sex: Male

DRUGS (2)
  1. TEGRETOL [Suspect]
     Indication: CONVULSION
     Dosage: 0.125 G, BID
     Route: 048
     Dates: start: 20080410, end: 20110901
  2. ARICEPT [Suspect]
     Indication: DEMENTIA
     Dosage: 5 MG, UNK
     Route: 048
     Dates: start: 20081113, end: 20110901

REACTIONS (5)
  - LOSS OF CONSCIOUSNESS [None]
  - SINOATRIAL BLOCK [None]
  - HEART RATE DECREASED [None]
  - SICK SINUS SYNDROME [None]
  - SINUS ARREST [None]
